FAERS Safety Report 25168526 (Version 2)
Quarter: 2025Q2

REPORT INFORMATION
  Report Type: Spontaneous
  Country: US (occurrence: US)
  Receive Date: 20250407
  Receipt Date: 20250630
  Transmission Date: 20250716
  Serious: No
  Sender: FERRING
  Company Number: US-FERRINGPH-2025FE01115

PATIENT
  Age: 63 Year
  Sex: Male
  Weight: 106 kg

DRUGS (1)
  1. ADSTILADRIN [Suspect]
     Active Substance: NADOFARAGENE FIRADENOVEC-VNCG
     Indication: Bladder cancer
     Route: 043
     Dates: start: 20250305

REACTIONS (1)
  - Expulsion of medication [Recovered/Resolved]

NARRATIVE: CASE EVENT DATE: 20250305
